FAERS Safety Report 12380811 (Version 1)
Quarter: 2016Q2

REPORT INFORMATION
  Report Type: Spontaneous
  Country: GB (occurrence: GB)
  Receive Date: 20160518
  Receipt Date: 20160518
  Transmission Date: 20160815
  Serious: Yes (Other)
  Sender: FDA-Public Use
  Company Number: GB-009507513-1605GBR007660

PATIENT
  Age: 68 Year
  Sex: Female

DRUGS (5)
  1. LOSARTAN POTASSIUM. [Concomitant]
     Active Substance: LOSARTAN POTASSIUM
  2. GAVISCON (ALUMINUM HYDROXIDE (+) CALCIUM CARBONATE (+) SODIUM ALGINATE [Concomitant]
  3. RIBAVIRIN. [Suspect]
     Active Substance: RIBAVIRIN
     Indication: HEPATITIS C
     Dosage: 1000 MG, UNKNOWN (600 MG IN THE MORNING AND 400 MG IN THE EVENING)
     Route: 065
     Dates: start: 20150818
  4. HARVONI [Suspect]
     Active Substance: LEDIPASVIR\SOFOSBUVIR
     Indication: HEPATITIS C
     Dosage: 1 DF, QD
     Route: 065
     Dates: start: 20150818
  5. METOPROLOL. [Concomitant]
     Active Substance: METOPROLOL

REACTIONS (2)
  - Drug ineffective [Unknown]
  - Hepatitis C [Unknown]
